FAERS Safety Report 5736818-2 (Version None)
Quarter: 2008Q2

REPORT INFORMATION
  Report Type: 
  Country: None (occurrence: None)
  Receive Date: 20080508
  Receipt Date: 20080422
  Transmission Date: 20081010
  Serious: Yes (Hospitalization)
  Sender: FDA-Public Use
  Company Number: 8032107

PATIENT
  Sex: Male
  Weight: 18 kg

DRUGS (1)
  1. XYZAL [Suspect]
     Indication: DERMATITIS ATOPIC
     Dosage: 35 ML ONCE PO
     Route: 048
     Dates: start: 20080401, end: 20080401

REACTIONS (2)
  - ERYTHEMA [None]
  - RASH PUSTULAR [None]
